FAERS Safety Report 9870019 (Version 1)
Quarter: 2014Q1

REPORT INFORMATION
  Report Type: Spontaneous
  Country: US (occurrence: US)
  Receive Date: 20140205
  Receipt Date: 20140205
  Transmission Date: 20141002
  Serious: No
  Sender: FDA-Public Use
  Company Number: US-GLAXOSMITHKLINE-A1029179A

PATIENT
  Sex: Female

DRUGS (2)
  1. VALACYCLOVIR [Suspect]
     Indication: HERPES VIRUS INFECTION
     Route: 065
  2. VALTREX [Concomitant]
     Indication: HERPES VIRUS INFECTION
     Route: 065

REACTIONS (1)
  - Herpes virus infection [Not Recovered/Not Resolved]
